FAERS Safety Report 6505348-2 (Version None)
Quarter: 2009Q4

REPORT INFORMATION
  Report Type: 
  Country: None (occurrence: None)
  Receive Date: 20091218
  Receipt Date: 20091208
  Transmission Date: 20100525
  Serious: Yes (Other)
  Sender: FDA-Public Use
  Company Number: AT-JNJFOC-20091202980

PATIENT
  Age: 75 Year
  Sex: Male

DRUGS (6)
  1. INFLIXIMAB [Suspect]
     Dosage: EVERY 4-5 WEEKS
     Route: 042
  2. INFLIXIMAB [Suspect]
     Indication: WEGENER'S GRANULOMATOSIS
     Dosage: DAY 0, WEEK 2, 6, AND THEN EVERY 8 WEEKS
     Route: 042
  3. CYCLOPHOSPHAMIDE [Concomitant]
     Route: 048
  4. CYCLOPHOSPHAMIDE [Concomitant]
     Indication: WEGENER'S GRANULOMATOSIS
     Route: 048
  5. PREDNISOLONE [Concomitant]
     Dosage: TAPERED TO 12.5 MG/DAY
  6. PREDNISOLONE [Concomitant]
     Indication: WEGENER'S GRANULOMATOSIS

REACTIONS (2)
  - HERPES ZOSTER [None]
  - THERAPEUTIC RESPONSE UNEXPECTED [None]
